FAERS Safety Report 7223312 (Version 2)
Quarter: 2014Q1

REPORT INFORMATION
  Report Type: Report from Study
  Country: AU (occurrence: AU)
  Receive Date: 20091218
  Receipt Date: 20140328
  Transmission Date: 20141002
  Serious: Yes (Life-Threatening, Hospitalization)
  Sender: FDA-Public Use
  Company Number: AU-JNJFOC-20091203109

PATIENT
  Age: 0 Day
  Sex: Male

DRUGS (8)
  1. HALOPERIDOL [Suspect]
     Indication: FOETAL EXPOSURE DURING PREGNANCY
  2. HALOPERIDOL [Suspect]
     Indication: FOETAL EXPOSURE DURING PREGNANCY
     Route: 064
  3. ZOLOFT [Interacting]
     Indication: FOETAL EXPOSURE DURING PREGNANCY
  4. QUETIAPINE [Interacting]
     Indication: FOETAL EXPOSURE DURING PREGNANCY
     Dosage: 900-1000 MG DAILY
  5. EFFEXOR [Interacting]
     Indication: FOETAL EXPOSURE DURING PREGNANCY
  6. FOLIC ACID [Concomitant]
     Indication: FOETAL EXPOSURE DURING PREGNANCY
  7. ELEVIT [Concomitant]
     Indication: FOETAL EXPOSURE DURING PREGNANCY
  8. EPIDURAL ANESTHESIA [Concomitant]

REACTIONS (5)
  - Premature baby [Unknown]
  - Drug interaction [Unknown]
  - Respiratory depression [Recovered/Resolved]
  - Jaundice [Recovered/Resolved]
  - Withdrawal syndrome [Recovered/Resolved]
